FAERS Safety Report 7372289-0 (Version None)
Quarter: 2011Q1

REPORT INFORMATION
  Report Type: 
  Country: None (occurrence: None)
  Receive Date: 20110324
  Receipt Date: 20110317
  Transmission Date: 20110831
  Serious: Yes (Other)
  Sender: FDA-Public Use
  Company Number: A0919515A

PATIENT
  Age: 59 Year
  Sex: Female
  Weight: 53 kg

DRUGS (2)
  1. WARFARIN [Concomitant]
  2. FLOLAN [Suspect]
     Indication: PRODUCT USED FOR UNKNOWN INDICATION
     Route: 042
     Dates: start: 20060104

REACTIONS (5)
  - PAIN [None]
  - RENAL FAILURE [None]
  - URINE OUTPUT DECREASED [None]
  - FLUID RETENTION [None]
  - ASCITES [None]
